FAERS Safety Report 5073512-8 (Version None)
Quarter: 2006Q3

REPORT INFORMATION
  Report Type: 
  Country: None (occurrence: None)
  Receive Date: 20060717
  Receipt Date: 20051130
  Transmission Date: 20061208
  Serious: No
  Sender: FDA-Public Use
  Company Number: 2005002305

PATIENT
  Age: 59 Year
  Sex: Female
  Weight: 63.5036 kg

DRUGS (9)
  1. TARCEVA [Suspect]
     Indication: NON-SMALL CELL LUNG CANCER
     Dosage: 150 MG (QD), ORAL
     Route: 048
  2. PLAVIX [Concomitant]
  3. PROTONIX [Concomitant]
  4. METOPROLOL TARTRATE [Concomitant]
  5. ENDOCET (OXYCOCET) [Concomitant]
  6. ARTHROTEC [Concomitant]
  7. XANAX [Concomitant]
  8. FLURAZEPAM [Concomitant]
  9. LEXAPRO [Concomitant]

REACTIONS (4)
  - DIARRHOEA [None]
  - DRY MOUTH [None]
  - GLOSSODYNIA [None]
  - RASH [None]
